FAERS Safety Report 14542652 (Version 1)
Quarter: 2018Q1

REPORT INFORMATION
  Report Type: Spontaneous
  Country: GB (occurrence: GB)
  Receive Date: 20180216
  Receipt Date: 20180216
  Transmission Date: 20180509
  Serious: Yes (Other)
  Sender: FDA-Public Use
  Company Number: GB-OTSUKA-DJ201408316

PATIENT

DRUGS (1)
  1. ABILIFY [Suspect]
     Active Substance: ARIPIPRAZOLE
     Route: 048

REACTIONS (11)
  - Abnormal weight gain [Not Recovered/Not Resolved]
  - Anxiety [Not Recovered/Not Resolved]
  - Headache [Not Recovered/Not Resolved]
  - Parkinsonism [Not Recovered/Not Resolved]
  - Tension [Not Recovered/Not Resolved]
  - Withdrawal syndrome [Not Recovered/Not Resolved]
  - Musculoskeletal stiffness [Not Recovered/Not Resolved]
  - Akathisia [Not Recovered/Not Resolved]
  - Dizziness [Not Recovered/Not Resolved]
  - Sensory disturbance [Not Recovered/Not Resolved]
  - Insomnia [Not Recovered/Not Resolved]

NARRATIVE: CASE EVENT DATE: 200706
